FAERS Safety Report 7307368-7 (Version None)
Quarter: 2011Q1

REPORT INFORMATION
  Report Type: 
  Country: None (occurrence: None)
  Receive Date: 20110209
  Receipt Date: 20110125
  Transmission Date: 20110831
  Serious: Yes (Hospitalization, Other)
  Sender: FDA-Public Use
  Company Number: AUR-APL-2010-02746

PATIENT
  Age: 74 Year
  Sex: Female
  Weight: 77 kg

DRUGS (6)
  1. VITAMIN D [Concomitant]
  2. COLACE [Concomitant]
  3. PRISTIQ [Suspect]
     Indication: DEPRESSION
     Dosage: 100MG-DAILY-
  4. ASPIRIN [Concomitant]
  5. LISINOPRIL [Suspect]
     Indication: HYPERTENSION
     Dosage: 20MG-DAILY-
     Dates: start: 20100901
  6. PRISTIQ [Suspect]
     Indication: DEPRESSION
     Dosage: 50MG-DAILY-

REACTIONS (10)
  - HYPERTENSION [None]
  - CONDITION AGGRAVATED [None]
  - STRESS [None]
  - DRUG EFFECT DECREASED [None]
  - BLOOD CHOLESTEROL INCREASED [None]
  - HEART RATE INCREASED [None]
  - ANXIETY [None]
  - DEPRESSION [None]
  - COLITIS ISCHAEMIC [None]
  - APHAGIA [None]
